FAERS Safety Report 4994772-5 (Version None)
Quarter: 2006Q1

REPORT INFORMATION
  Report Type: 
  Country: None (occurrence: None)
  Receive Date: 20060313
  Receipt Date: 20050517
  Transmission Date: 20060701
  Serious: Yes (Other)
  Sender: FDA-Public Use
  Company Number: PHEH2005US05593

PATIENT
  Age: 55 Year
  Sex: Female

DRUGS (6)
  1. TRILEPTAL [Suspect]
     Indication: CONVULSION
     Dosage: 600 MG,QID,ORAL
     Route: 048
     Dates: start: 20000901
  2. METFORMIN [Concomitant]
  3. ATENOLOL [Concomitant]
  4. ENTERIC ASPIRIN (ACETYLSALICYLIC ACID) [Concomitant]
  5. MULTIVITAMINS (ASCORBIC ACID, ERGOCALCIFEROL, FOLIC ACID, NICOTINAMIDE [Concomitant]
  6. EVISTA [Concomitant]

REACTIONS (1)
  - HYPONATRAEMIA [None]
